FAERS Safety Report 17679667 (Version 1)
Quarter: 2020Q2

REPORT INFORMATION
  Report Type: Spontaneous
  Country: CA (occurrence: CA)
  Receive Date: 20200417
  Receipt Date: 20200417
  Transmission Date: 20200714
  Serious: Yes (Other)
  Sender: FDA-Public Use
  Company Number: CA-B.I. PHARMACEUTICALS,INC./RIDGEFIELD-2020-BI-020057

PATIENT
  Age: 82 Year
  Sex: Male

DRUGS (2)
  1. MICARDIS [Suspect]
     Active Substance: TELMISARTAN
     Indication: PRODUCT USED FOR UNKNOWN INDICATION
     Route: 065
  2. SANDOSTATIN [Suspect]
     Active Substance: OCTREOTIDE ACETATE
     Indication: CARCINOID TUMOUR
     Route: 030

REACTIONS (12)
  - Deafness [Unknown]
  - Blood pressure systolic increased [Unknown]
  - Diarrhoea [Unknown]
  - Joint swelling [Unknown]
  - Ingrowing nail [Unknown]
  - Weight decreased [Unknown]
  - Hypoaesthesia [Unknown]
  - Abnormal faeces [Unknown]
  - Oedema [Unknown]
  - Peripheral swelling [Unknown]
  - Erythema [Unknown]
  - Paraesthesia [Unknown]
